FAERS Safety Report 6740217-4 (Version None)
Quarter: 2010Q2

REPORT INFORMATION
  Report Type: 
  Country: None (occurrence: None)
  Receive Date: 20100525
  Receipt Date: 20100513
  Transmission Date: 20101027
  Serious: Yes (Life-Threatening)
  Sender: FDA-Public Use
  Company Number: B0629016A

PATIENT
  Sex: Female
  Weight: 40 kg

DRUGS (2)
  1. TYKERB [Suspect]
     Indication: BREAST CANCER
     Dosage: 1250MG PER DAY
     Route: 048
     Dates: start: 20091114, end: 20100121
  2. XELODA [Concomitant]
     Indication: BREAST CANCER
     Dosage: 600MG PER DAY
     Route: 048
     Dates: start: 20091114, end: 20100121

REACTIONS (2)
  - CARDIAC FAILURE CONGESTIVE [None]
  - PLEURAL EFFUSION [None]
